FAERS Safety Report 25857692 (Version 1)
Quarter: 2025Q3

REPORT INFORMATION
  Report Type: Spontaneous
  Country: GB (occurrence: GB)
  Receive Date: 20250929
  Receipt Date: 20250929
  Transmission Date: 20251020
  Serious: Yes (Other)
  Sender: TORRENT PHARMA INC.
  Company Number: None

PATIENT
  Age: 59 Year
  Sex: Female

DRUGS (2)
  1. ARIPIPRAZOLE [Suspect]
     Active Substance: ARIPIPRAZOLE
     Indication: Post-traumatic stress disorder
     Dosage: 5MD OD (ONCE DAILY) (UNSURE ABOUT STOP DATE)
     Route: 065
     Dates: start: 2018, end: 2022
  2. CITALOPRAM [Concomitant]
     Active Substance: CITALOPRAM
     Indication: Depression suicidal
     Route: 065
     Dates: start: 2018, end: 2024

REACTIONS (1)
  - Remission not achieved [Not Recovered/Not Resolved]

NARRATIVE: CASE EVENT DATE: 20180101
